FAERS Safety Report 8845610 (Version 1)
Quarter: 2012Q4

REPORT INFORMATION
  Report Type: 
  Country: US (occurrence: US)
  Receive Date: 20121017
  Receipt Date: 20121017
  Transmission Date: 20130627
  Serious: No
  Sender: FDA-Public Use
  Company Number: US-ROCHE-GNE223010

PATIENT
  Age: 14 Year
  Sex: Male

DRUGS (2)
  1. NUTROPIN AQ [Suspect]
     Indication: UNEVALUABLE EVENT
     Dosage: 2.6 mg, qod
     Route: 058
     Dates: start: 200503
  2. NUTROPIN AQ [Suspect]
     Indication: ENDOCRINE DISORDER

REACTIONS (1)
  - Injection site urticaria [Unknown]
